FAERS Safety Report 8870848 (Version 1)
Quarter: 2012Q4

REPORT INFORMATION
  Report Type: 
  Country: DE (occurrence: DE)
  Receive Date: 20121029
  Receipt Date: 20121029
  Transmission Date: 20130627
  Serious: Yes (Hospitalization)
  Sender: FDA-Public Use
  Company Number: GXKR2012DE003311

PATIENT
  Age: 54 Year
  Sex: Female
  Weight: 80 kg

DRUGS (4)
  1. L-THYROX 50 [Suspect]
     Route: 048
     Dates: start: 2008
  2. RISPERIDONE [Suspect]
     Indication: BIPOLAR DISORDER
     Dosage: 1 mg - 0.5 mg - 0.5 mg/day
     Route: 048
     Dates: start: 2008
  3. CLOZAPINE [Suspect]
     Indication: BIPOLAR DISORDER
     Dosage: 150 mg -100 mg - 200 mg/day
     Dates: start: 2008
  4. LITHIUM [Suspect]
     Indication: BIPOLAR DISORDER
     Dosage: 400 mg, BID (1-0-1)
     Route: 048
     Dates: start: 2008

REACTIONS (2)
  - Procedural haemorrhage [Unknown]
  - Platelet aggregation inhibition [Unknown]
